FAERS Safety Report 12508886 (Version 3)
Quarter: 2016Q3

REPORT INFORMATION
  Report Type: Spontaneous
  Country: CH (occurrence: CH)
  Receive Date: 20160629
  Receipt Date: 20160715
  Transmission Date: 20161109
  Serious: Yes (Hospitalization, Other)
  Sender: FDA-Public Use
  Company Number: CH-PFIZER INC-2016309282

PATIENT
  Age: 81 Year
  Sex: Male
  Weight: 71 kg

DRUGS (10)
  1. DILZEM [Suspect]
     Active Substance: DILTIAZEM
     Dosage: 90 MG, 1X/DAY
     Route: 048
  2. DANCOR [Concomitant]
     Active Substance: NICORANDIL
     Route: 065
  3. METOPROLOL. [Concomitant]
     Active Substance: METOPROLOL
     Route: 065
  4. ELIQUIS [Interacting]
     Active Substance: APIXABAN
     Indication: CEREBROVASCULAR ACCIDENT PROPHYLAXIS
     Dosage: 5 MG, 2X/DAY
     Route: 048
     Dates: start: 20141204, end: 20160528
  5. TORASEMID [Concomitant]
     Active Substance: TORSEMIDE
     Route: 065
  6. LISINOPRIL. [Concomitant]
     Active Substance: LISINOPRIL
     Route: 065
  7. JENTADUETO [Concomitant]
     Active Substance: LINAGLIPTIN\METFORMIN HYDROCHLORIDE
     Route: 065
  8. DIGOXIN. [Concomitant]
     Active Substance: DIGOXIN
     Route: 065
  9. NITRODERM [Concomitant]
     Active Substance: NITROGLYCERIN
     Route: 065
  10. RYZODEG 70/30 [Concomitant]
     Active Substance: INSULIN ASPART\INSULIN DEGLUDEC
     Route: 065

REACTIONS (2)
  - Basal ganglia haemorrhage [Not Recovered/Not Resolved]
  - Labelled drug-drug interaction medication error [Not Recovered/Not Resolved]

NARRATIVE: CASE EVENT DATE: 20160528
